FAERS Safety Report 6166799-1 (Version None)
Quarter: 2009Q2

REPORT INFORMATION
  Report Type: 
  Country: None (occurrence: None)
  Receive Date: 20090423
  Receipt Date: 20090423
  Transmission Date: 20091009
  Serious: Yes (Life-Threatening, Hospitalization, Other)
  Sender: FDA-Public Use
  Company Number: None

PATIENT
  Age: 33 Year
  Sex: Female
  Weight: 168.7381 kg

DRUGS (2)
  1. CEPHALEXIN [Suspect]
     Indication: INFECTION PROPHYLAXIS
     Dosage: 500MG EVERY 6 HOURS DENTAL
     Route: 004
     Dates: start: 20090420, end: 20090421
  2. CEPHALEXIN [Suspect]
     Indication: TOOTH DISORDER
     Dosage: 500MG EVERY 6 HOURS DENTAL
     Route: 004
     Dates: start: 20090420, end: 20090421

REACTIONS (1)
  - DYSPNOEA [None]
